FAERS Safety Report 7249311-5 (Version None)
Quarter: 2011Q1

REPORT INFORMATION
  Report Type: 
  Country: None (occurrence: None)
  Receive Date: 20110118
  Receipt Date: 20110105
  Transmission Date: 20110831
  Serious: Yes (Death)
  Sender: FDA-Public Use
  Company Number: 024669

PATIENT
  Sex: Male

DRUGS (8)
  1. MAGNESIUM OXIDE [Concomitant]
  2. ROTIGOTINE (ROTIGOTINE) [Suspect]
     Indication: PARKINSON'S DISEASE
     Dosage: (2 MG-16 MG/24 HOURS TRANSDERMAL) ; (16 MG 1X/24 HOURS TRANSDERMAL)
     Route: 062
     Dates: start: 20100701, end: 20101226
  3. ROTIGOTINE (ROTIGOTINE) [Suspect]
     Indication: PARKINSON'S DISEASE
     Dosage: (2 MG-16 MG/24 HOURS TRANSDERMAL) ; (16 MG 1X/24 HOURS TRANSDERMAL)
     Route: 062
     Dates: start: 20100519, end: 20100701
  4. IMIDAPRIL HYDROCHLORIDE [Concomitant]
  5. ASPIRIN [Concomitant]
  6. SELEGILINE HYDROCHLORIDE [Concomitant]
  7. AMANTADINE HCL [Concomitant]
  8. BENSERAZIDE HYDROCHLORIDE WLEVODOPA [Concomitant]

REACTIONS (4)
  - UNRESPONSIVE TO STIMULI [None]
  - SUDDEN DEATH [None]
  - FALL [None]
  - MYOCARDIAL ISCHAEMIA [None]
